FAERS Safety Report 8572765-9 (Version None)
Quarter: 2012Q3

REPORT INFORMATION
  Report Type: 
  Country: None (occurrence: None)
  Receive Date: 20120806
  Receipt Date: 20120724
  Transmission Date: 20120928
  Serious: Yes (Hospitalization)
  Sender: FDA-Public Use
  Company Number: GB-TEVA-350273ISR

PATIENT
  Sex: Male

DRUGS (1)
  1. QUETIAPINE [Suspect]
     Route: 048

REACTIONS (2)
  - ROAD TRAFFIC ACCIDENT [None]
  - LOSS OF CONSCIOUSNESS [None]
